FAERS Safety Report 7979168-6 (Version None)
Quarter: 2011Q4

REPORT INFORMATION
  Report Type: 
  Country: None (occurrence: None)
  Receive Date: 20111205
  Receipt Date: 20111128
  Transmission Date: 20120403
  Serious: Yes (Other)
  Sender: FDA-Public Use
  Company Number: 2011SP052362

PATIENT
  Sex: Female

DRUGS (10)
  1. EMSAM [Concomitant]
  2. AMBIEN [Concomitant]
  3. ACETAMINOPHEN [Concomitant]
  4. KLONOPIN [Concomitant]
  5. LAMICTAL [Concomitant]
  6. TOPAMAX [Concomitant]
  7. SAPHRIS [Suspect]
     Indication: BIPOLAR DISORDER
     Dosage: 10 MG;QPM;PO
     Route: 048
     Dates: start: 20110822
  8. SEROQUEL [Suspect]
     Indication: PRODUCT USED FOR UNKNOWN INDICATION
     Dosage: HS
  9. VICODIN [Concomitant]
  10. INVEGA [Concomitant]

REACTIONS (1)
  - HYPOMANIA [None]
